FAERS Safety Report 20699874 (Version 1)
Quarter: 2022Q2

REPORT INFORMATION
  Report Type: Spontaneous
  Country: US (occurrence: US)
  Receive Date: 20220412
  Receipt Date: 20220412
  Transmission Date: 20220721
  Serious: Yes (Other)
  Sender: FDA-Public Use
  Company Number: US-MACLEODS PHARMACEUTICALS US LTD-MAC2022035073

PATIENT

DRUGS (13)
  1. LEVOCETIRIZINE DIHYDROCHLORIDE [Suspect]
     Active Substance: LEVOCETIRIZINE DIHYDROCHLORIDE
     Indication: Mast cell activation syndrome
     Dosage: UNK
     Route: 065
  2. MONTELUKAST [Suspect]
     Active Substance: MONTELUKAST SODIUM
     Indication: Mast cell activation syndrome
     Dosage: UNK
     Route: 065
  3. RANITIDINE [Suspect]
     Active Substance: RANITIDINE
     Indication: Mast cell activation syndrome
     Dosage: UNK
     Route: 065
  4. FEXOFENADINE [Concomitant]
     Active Substance: FEXOFENADINE HYDROCHLORIDE
     Indication: Mast cell activation syndrome
     Dosage: UNK
     Route: 065
  5. DIPHENHYDRAMINE [Concomitant]
     Active Substance: DIPHENHYDRAMINE
     Indication: Mast cell activation syndrome
     Dosage: UNK
     Route: 065
  6. FAMOTIDINE [Concomitant]
     Active Substance: FAMOTIDINE
     Indication: Mast cell activation syndrome
     Dosage: UNK
     Route: 065
  7. CETIRIZINE [Concomitant]
     Active Substance: CETIRIZINE HYDROCHLORIDE
     Indication: Mast cell activation syndrome
     Dosage: UNK
     Route: 065
  8. LORATADINE [Concomitant]
     Active Substance: LORATADINE
     Indication: Mast cell activation syndrome
     Dosage: UNK
     Route: 065
  9. KETOTIFEN [Concomitant]
     Active Substance: KETOTIFEN
     Indication: Mast cell activation syndrome
     Dosage: 2 MILLIGRAM, QD
     Route: 065
  10. KETOTIFEN [Concomitant]
     Active Substance: KETOTIFEN
     Dosage: 1.5 MILLIGRAM, QD
     Route: 065
  11. CROMOLYN [Concomitant]
     Active Substance: CROMOLYN
     Indication: Mast cell activation syndrome
     Dosage: UNK
     Route: 048
  12. NALTREXONE [Concomitant]
     Active Substance: NALTREXONE
     Indication: Mast cell activation syndrome
     Dosage: UNK (UP TO 3 MG ONCE DAILY)
     Route: 065
  13. IMATINIB [Concomitant]
     Active Substance: IMATINIB
     Indication: Mast cell activation syndrome
     Dosage: UNK (LOW DOSE (100 MG ONCE DAILY)
     Route: 065

REACTIONS (6)
  - Mast cell activation syndrome [Unknown]
  - Condition aggravated [Unknown]
  - Cognitive disorder [Recovering/Resolving]
  - Cerebral disorder [Recovering/Resolving]
  - Drug intolerance [Recovering/Resolving]
  - Condition aggravated [Recovering/Resolving]
